FAERS Safety Report 6433691-4 (Version None)
Quarter: 2009Q4

REPORT INFORMATION
  Report Type: 
  Country: None (occurrence: None)
  Receive Date: 20091106
  Receipt Date: 20091106
  Transmission Date: 20100525
  Serious: Yes (Hospitalization)
  Sender: FDA-Public Use
  Company Number: None

PATIENT
  Age: 63 Year
  Sex: Male
  Weight: 114.8 kg

DRUGS (1)
  1. DEMEROL [Suspect]
     Indication: PAIN
     Dosage: 25 MG ONCE IV
     Route: 042
     Dates: start: 20090824, end: 20090824

REACTIONS (7)
  - ANAEMIA [None]
  - ANAPHYLACTIC SHOCK [None]
  - ASPIRATION [None]
  - PNEUMONIA [None]
  - RENAL INJURY [None]
  - RESPIRATORY ARREST [None]
  - THROMBOCYTOPENIA [None]
